FAERS Safety Report 4423700-6 (Version None)
Quarter: 2004Q3

REPORT INFORMATION
  Report Type: 
  Country: None (occurrence: None)
  Receive Date: 20040719
  Receipt Date: 20040521
  Transmission Date: 20050211
  Serious: No
  Sender: FDA-Public Use
  Company Number: A03200401654

PATIENT
  Sex: Male

DRUGS (6)
  1. UROXATRAL [Suspect]
     Dosage: 10 MG OD - ORAL
     Route: 048
  2. FINASTERIDE [Concomitant]
  3. RANITIDINE HYDROCHLORIDE [Concomitant]
  4. GLYBURIDE [Concomitant]
  5. MULTI-VITAMINS [Concomitant]
  6. SULFASALAZINE [Concomitant]

REACTIONS (1)
  - DIZZINESS [None]
